FAERS Safety Report 17682554 (Version 1)
Quarter: 2020Q2

REPORT INFORMATION
  Report Type: Report from Study
  Country: AR (occurrence: AR)
  Receive Date: 20200418
  Receipt Date: 20200418
  Transmission Date: 20200714
  Serious: Yes (Hospitalization)
  Sender: FDA-Public Use
  Company Number: NVSC2020AR019609

PATIENT
  Age: 38 Year
  Sex: Female

DRUGS (1)
  1. GILENYA [Suspect]
     Active Substance: FINGOLIMOD HYDROCHLORIDE
     Indication: MULTIPLE SCLEROSIS
     Dosage: 0.5 MG, QD
     Route: 065
     Dates: start: 20111109, end: 201811

REACTIONS (8)
  - Skin bacterial infection [Recovering/Resolving]
  - Postoperative wound infection [Recovering/Resolving]
  - Maternal exposure before pregnancy [Unknown]
  - Pyrexia [Recovering/Resolving]
  - Procedural pain [Recovering/Resolving]
  - Seroma [Recovering/Resolving]
  - Normal newborn [Unknown]
  - Wound complication [Recovering/Resolving]

NARRATIVE: CASE EVENT DATE: 202001
